FAERS Safety Report 16821979 (Version 2)
Quarter: 2019Q4

REPORT INFORMATION
  Report Type: Spontaneous
  Country: US (occurrence: US)
  Receive Date: 20190918
  Receipt Date: 20191119
  Transmission Date: 20200122
  Serious: Yes (Other)
  Sender: FDA-Public Use
  Company Number: US-AMGEN-USASP2019152181

PATIENT
  Age: 7 Year
  Sex: Female
  Weight: 18.6 kg

DRUGS (20)
  1. ENBREL [Suspect]
     Active Substance: ETANERCEPT
     Indication: JUVENILE IDIOPATHIC ARTHRITIS
     Dosage: UNK
     Route: 065
     Dates: start: 20141217, end: 20150420
  2. ADALIMUMAB [Suspect]
     Active Substance: ADALIMUMAB
     Indication: JUVENILE IDIOPATHIC ARTHRITIS
     Dosage: UNK
     Route: 065
     Dates: start: 20150420, end: 20151008
  3. NABUMETON [Concomitant]
     Dosage: 500 MILLIGRAM, QD  (1 TABLET WITH FOOD)
     Route: 048
  4. REMICADE [Suspect]
     Active Substance: INFLIXIMAB
     Indication: JUVENILE IDIOPATHIC ARTHRITIS
     Dosage: UNK
     Route: 065
     Dates: start: 20190312, end: 2019
  5. TOCILIZUMAB. [Suspect]
     Active Substance: TOCILIZUMAB
     Indication: JUVENILE IDIOPATHIC ARTHRITIS
     Dosage: UNK
     Route: 065
     Dates: start: 20151008, end: 20160412
  6. METHOTREXATE SODIUM. [Suspect]
     Active Substance: METHOTREXATE SODIUM
     Indication: JUVENILE IDIOPATHIC ARTHRITIS
     Dosage: 0.4 MILLILITER, QWK
     Route: 065
     Dates: start: 20140909
  7. ABATACEPT [Suspect]
     Active Substance: ABATACEPT
     Indication: JUVENILE IDIOPATHIC ARTHRITIS
     Dosage: UNK
     Route: 065
     Dates: start: 20180208, end: 20190312
  8. FOLIC ACID. [Concomitant]
     Active Substance: FOLIC ACID
     Dosage: 1 MILLIGRAM, QD  (TAKE ONE TABLET DAILY EXCEPT ON METHOTREXATE DAYS)
     Route: 048
  9. GAMMAGARD [Concomitant]
     Active Substance: HUMAN IMMUNOGLOBULIN G
     Dosage: 8 GRAM  (8 GRAMS OVER 4 HOURS INTRAVENOUSLY EVERY 4 WEEKS)
     Route: 042
  10. LANTUS [Concomitant]
     Active Substance: INSULIN GLARGINE
     Dosage: UNK (USE UP TO 10 UNITS A DAY)
     Route: 058
  11. METHOTREXATE SODIUM. [Suspect]
     Active Substance: METHOTREXATE SODIUM
     Dosage: 12.5 MILLIGRAM, QWK
     Route: 058
     Dates: start: 20181004
  12. RITUXIMAB. [Suspect]
     Active Substance: RITUXIMAB
     Indication: JUVENILE IDIOPATHIC ARTHRITIS
     Dosage: UNK
     Route: 065
     Dates: start: 20160412, end: 20181011
  13. VENTOLIN HFA [Concomitant]
     Active Substance: ALBUTEROL SULFATE
     Dosage: UNK (1-2 PUFFS )
     Route: 055
  14. INSULIN [Concomitant]
     Active Substance: INSULIN NOS
     Dosage: UNK
  15. MONTELUKAST SODIUM. [Concomitant]
     Active Substance: MONTELUKAST SODIUM
     Dosage: 5 MILLIGRAM, QD
     Route: 048
  16. GLUCAGON EMERGENCY KIT [Concomitant]
     Active Substance: GLUCAGON
     Dosage: 1 MILLIGRAM  (1 MG INJECTION KIT) AS DIRECTED
  17. HUMALOG [Concomitant]
     Active Substance: INSULIN LISPRO
     Dosage: UNK (USE UP TO 30 UNITS DAILY AS DIRECTED VIA PUMP)
     Route: 058
  18. LIDOCAINE AND PRILOCAINE [Concomitant]
     Active Substance: LIDOCAINE\PRILOCAINE
     Dosage: UNK (2.5-/2.5 %)
  19. REMICADE [Suspect]
     Active Substance: INFLIXIMAB
     Dosage: UNK (12.5 MG/KG )
     Route: 065
     Dates: start: 201905, end: 2019
  20. REMICADE [Suspect]
     Active Substance: INFLIXIMAB
     Dosage: UNK (15 MG/KG )
     Route: 065
     Dates: start: 201907, end: 2019

REACTIONS (3)
  - Hypogammaglobulinaemia [Unknown]
  - Drug ineffective [Unknown]
  - Infection [Unknown]
